FAERS Safety Report 7912620-8 (Version None)
Quarter: 2011Q4

REPORT INFORMATION
  Report Type: 
  Country: None (occurrence: None)
  Receive Date: 20111114
  Receipt Date: 20111111
  Transmission Date: 20120403
  Serious: Yes (Other)
  Sender: FDA-Public Use
  Company Number: BR-PFIZER INC-2011189490

PATIENT
  Age: 56 Year
  Sex: Male
  Weight: 81 kg

DRUGS (6)
  1. VARENICLINE TARTRATE [Suspect]
     Dosage: ONE TABLET TWICE DAILY
     Route: 048
     Dates: start: 20110101
  2. VYTORIN [Concomitant]
     Indication: BLOOD CHOLESTEROL INCREASED
     Dosage: EZETIMIBE 10MG/ SIMVASTATIN 20MG, 1X/DAY AT NIGHT
  3. VARENICLINE TARTRATE [Suspect]
     Dosage: TWO TABLETS ONCE DAILY
     Route: 048
     Dates: start: 20110101, end: 20110101
  4. VYTORIN [Concomitant]
     Indication: CAROTID ARTERY DISEASE
  5. VYTORIN [Concomitant]
     Indication: BLOOD CHOLESTEROL
  6. VARENICLINE TARTRATE [Suspect]
     Indication: SMOKING CESSATION THERAPY
     Dosage: 0.5 MG, 1X/DAY
     Route: 048
     Dates: start: 20110816, end: 20110101

REACTIONS (6)
  - NERVOUSNESS [None]
  - INSOMNIA [None]
  - MENTAL DISORDER [None]
  - DEPRESSED MOOD [None]
  - DIZZINESS [None]
  - NAUSEA [None]
